FAERS Safety Report 5227037-7 (Version None)
Quarter: 2007Q1

REPORT INFORMATION
  Report Type: 
  Country: None (occurrence: None)
  Receive Date: 20070201
  Receipt Date: 20070201
  Transmission Date: 20070707
  Serious: Yes (Hospitalization)
  Sender: FDA-Public Use
  Company Number: None

PATIENT
  Sex: Female
  Weight: 54 kg

DRUGS (3)
  1. CARMUSTINE [Suspect]
     Dosage: 225 MG
     Route: 042
     Dates: start: 20061118, end: 20061120
  2. CYCLOPHOSPHAMIDE [Suspect]
     Dosage: 2004 MG
  3. ETOPOSIDE [Suspect]
     Dosage: 3096 MG

REACTIONS (15)
  - ASTHENIA [None]
  - BLOOD PH INCREASED [None]
  - CHEST DISCOMFORT [None]
  - DILATATION ATRIAL [None]
  - DILATATION VENTRICULAR [None]
  - DYSPNOEA [None]
  - HYPOXIA [None]
  - LOW CARDIAC OUTPUT SYNDROME [None]
  - LUNG NEOPLASM [None]
  - LYMPHADENOPATHY [None]
  - ORAL INTAKE REDUCED [None]
  - OXYGEN SATURATION DECREASED [None]
  - PO2 INCREASED [None]
  - PULMONARY HYPERTENSION [None]
  - TACHYPNOEA [None]
